FAERS Safety Report 8356114-7 (Version None)
Quarter: 2012Q2

REPORT INFORMATION
  Report Type: 
  Country: None (occurrence: None)
  Receive Date: 20120510
  Receipt Date: 20120503
  Transmission Date: 20120825
  Serious: Yes (Death)
  Sender: FDA-Public Use
  Company Number: 201205000017

PATIENT
  Age: 38 Year
  Sex: Male

DRUGS (1)
  1. INOMAX [Suspect]
     Indication: HYPOXIA
     Dosage: 20 PPM , CONTINOUS, INHALATION
     Route: 055
     Dates: start: 20120428, end: 20120429

REACTIONS (2)
  - CARDIO-RESPIRATORY ARREST [None]
  - RESPIRATORY FAILURE [None]
